FAERS Safety Report 6274441-4 (Version None)
Quarter: 2009Q3

REPORT INFORMATION
  Report Type: 
  Country: None (occurrence: None)
  Receive Date: 20090720
  Receipt Date: 20090715
  Transmission Date: 20100115
  Serious: Yes (Death, Other)
  Sender: FDA-Public Use
  Company Number: DE-ABBOTT-09P-062-0585326-00

PATIENT
  Age: 58 Year
  Sex: Male

DRUGS (4)
  1. HUMIRA [Suspect]
     Indication: FISTULA
     Route: 058
  2. AZATHIOPRINE [Suspect]
     Indication: DRUG USE FOR UNKNOWN INDICATION
  3. REMICADE [Suspect]
     Indication: FISTULA
     Dosage: INFUSION
  4. CYCLOPHOSPHAMIDE [Suspect]
     Indication: CHEMOTHERAPY
     Dosage: NOT REPORTED

REACTIONS (2)
  - HEPATOSPLENIC T-CELL LYMPHOMA [None]
  - INFECTION [None]
